FAERS Safety Report 9410110 (Version 2)
Quarter: 2013Q3

REPORT INFORMATION
  Report Type: Report from Study
  Country: US (occurrence: US)
  Receive Date: 20130719
  Receipt Date: 20130919
  Transmission Date: 20140515
  Serious: Yes (Other)
  Sender: FDA-Public Use
  Company Number: US-PURDUE-USA-2013-0104458

PATIENT
  Sex: Male

DRUGS (1)
  1. OXYCONTIN (NDA 22-272) [Suspect]
     Indication: NEURALGIA
     Dosage: 80 MG, TID
     Route: 048
     Dates: end: 201308

REACTIONS (3)
  - Local swelling [Not Recovered/Not Resolved]
  - Malaise [Unknown]
  - Myocardial infarction [Recovered/Resolved]
